FAERS Safety Report 6373193-7 (Version None)
Quarter: 2009Q3

REPORT INFORMATION
  Report Type: 
  Country: None (occurrence: None)
  Receive Date: 20090924
  Receipt Date: 20090128
  Transmission Date: 20100115
  Serious: No
  Sender: FDA-Public Use
  Company Number: US-ASTRAZENECA-2009UW02528

PATIENT
  Age: 15 Year
  Sex: Male

DRUGS (2)
  1. SEROQUEL [Suspect]
     Indication: ABNORMAL BEHAVIOUR
     Route: 048
  2. WELLBUTRIN [Concomitant]

REACTIONS (1)
  - BLOOD BILIRUBIN INCREASED [None]
